FAERS Safety Report 14218087 (Version 3)
Quarter: 2018Q2

REPORT INFORMATION
  Report Type: Spontaneous
  Country: US (occurrence: US)
  Receive Date: 20171123
  Receipt Date: 20180404
  Transmission Date: 20180711
  Serious: No
  Sender: FDA-Public Use
  Company Number: US-LUNDBECK-DKLU2039163

PATIENT
  Age: 87 Year
  Sex: Female

DRUGS (3)
  1. NORTHERA [Suspect]
     Active Substance: DROXIDOPA
     Indication: PRODUCT USED FOR UNKNOWN INDICATION
     Route: 065
     Dates: start: 20171022
  2. NORTHERA [Suspect]
     Active Substance: DROXIDOPA
     Dosage: MAINTENANCE DOSE
     Route: 065
     Dates: start: 2017
  3. NORTHERA [Suspect]
     Active Substance: DROXIDOPA
     Route: 048
     Dates: start: 20170928

REACTIONS (7)
  - Blood pressure decreased [Recovered/Resolved]
  - Drug ineffective [Recovered/Resolved]
  - Restless legs syndrome [Recovered/Resolved]
  - Presyncope [Recovered/Resolved]
  - Nervousness [Recovered/Resolved]
  - Condition aggravated [Recovered/Resolved]
  - Blood pressure increased [Recovered/Resolved]

NARRATIVE: CASE EVENT DATE: 20171022
